FAERS Safety Report 6031158-9 (Version None)
Quarter: 2009Q1

REPORT INFORMATION
  Report Type: 
  Country: None (occurrence: None)
  Receive Date: 20090108
  Receipt Date: 20090105
  Transmission Date: 20090719
  Serious: Yes (Life-Threatening, Other)
  Sender: FDA-Public Use
  Company Number: GB-WYE-G02881609

PATIENT
  Age: 29 Year
  Sex: Female
  Weight: 60 kg

DRUGS (2)
  1. EFFEXOR [Suspect]
     Indication: DEPRESSION
     Dosage: 150MG, FREQUENCY UNSPECIFIED
     Route: 048
     Dates: start: 20080701
  2. DIAZEPAM [Concomitant]
     Dosage: UNKNOWN

REACTIONS (1)
  - ACUTE HEPATIC FAILURE [None]
